FAERS Safety Report 11103444 (Version 3)
Quarter: 2015Q2

REPORT INFORMATION
  Report Type: Report from Study
  Country: FR (occurrence: FR)
  Receive Date: 20150511
  Receipt Date: 20150520
  Transmission Date: 20150821
  Serious: Yes (Death, Hospitalization)
  Sender: FDA-Public Use
  Company Number: FR-EISAI MEDICAL RESEARCH-EC-2015-004063

PATIENT
  Age: 68 Year
  Sex: Male
  Weight: 135 kg

DRUGS (12)
  1. INEXIUM [Concomitant]
     Active Substance: ESOMEPRAZOLE
  2. INNOHEP [Concomitant]
     Active Substance: TINZAPARIN SODIUM
  3. DIGOXINE NATIVELLE [Concomitant]
     Active Substance: DIGOXIN
  4. DOLIPRANE [Concomitant]
     Active Substance: ACETAMINOPHEN
  5. LASILIX [Concomitant]
     Active Substance: FUROSEMIDE
  6. LENVATINIB [Suspect]
     Active Substance: LENVATINIB
     Indication: HEPATOCELLULAR CARCINOMA
     Route: 048
     Dates: start: 20150129, end: 20150212
  7. BECOTIDE [Concomitant]
     Active Substance: BECLOMETHASONE DIPROPIONATE
  8. CAPTEA [Concomitant]
     Active Substance: CAPTOPRIL\HYDROCHLOROTHIAZIDE
  9. LENVATINIB [Suspect]
     Active Substance: LENVATINIB
     Route: 048
     Dates: start: 20150226, end: 20150506
  10. AVLOCARDYL [Concomitant]
     Active Substance: PROPRANOLOL HYDROCHLORIDE
  11. BI-PRETERAX [Concomitant]
  12. VENTOLIN [Concomitant]
     Active Substance: ALBUTEROL SULFATE

REACTIONS (2)
  - Cerebral haemorrhage [Fatal]
  - Atrial fibrillation [Recovered/Resolved]

NARRATIVE: CASE EVENT DATE: 20150212
